FAERS Safety Report 10144413 (Version 1)
Quarter: 2014Q2

REPORT INFORMATION
  Report Type: Report from Study
  Country: US (occurrence: US)
  Receive Date: 20140430
  Receipt Date: 20140430
  Transmission Date: 20141212
  Serious: Yes (Other)
  Sender: FDA-Public Use
  Company Number: US-ABBVIE-14P-163-1231311-00

PATIENT
  Sex: Female

DRUGS (24)
  1. SYNTHROID [Suspect]
     Indication: HYPOTHYROIDISM
  2. ARMOUR THYROID [Concomitant]
     Indication: HYPOTHYROIDISM
     Dosage: AT BEDTIME
  3. TRAOJINT [Concomitant]
     Indication: HYPOTHYROIDISM
     Dosage: AT BEDTIME
  4. EFFEXOR XR [Concomitant]
     Indication: DEPRESSION
  5. ACIPHEX [Concomitant]
     Indication: HYPERCHLORHYDRIA
  6. POTASSIUM [Concomitant]
     Indication: PRODUCT USED FOR UNKNOWN INDICATION
  7. TYLENOL WITH CODEINE [Concomitant]
     Indication: PAIN
     Dosage: EVERY 4-6 HRS AS NEEDED
  8. TYLENOL WITH CODEINE [Concomitant]
     Indication: CONSTIPATION
  9. WELCHOL [Concomitant]
     Indication: DIARRHOEA
     Dosage: AS NEEDED
  10. PREDNISONE [Concomitant]
     Indication: CROHN^S DISEASE
  11. PREMARIN [Concomitant]
     Indication: PRODUCT USED FOR UNKNOWN INDICATION
  12. ONDANSETRON [Concomitant]
     Indication: NAUSEA
     Dosage: AS NEEDED
  13. DICYCLOMINE [Concomitant]
     Indication: NAUSEA
     Dosage: AS NEEDED
  14. TYLENOL [Concomitant]
     Indication: PRODUCT USED FOR UNKNOWN INDICATION
     Dosage: AS NEEDED
  15. BENADRYL [Concomitant]
     Indication: PRODUCT USED FOR UNKNOWN INDICATION
     Dosage: AS NEEDED
  16. TYLENOL PM [Concomitant]
     Indication: INSOMNIA
     Dosage: AT BEDTIME
  17. NEXABIOTIC (PROBIOTIC) [Concomitant]
     Indication: PRODUCT USED FOR UNKNOWN INDICATION
  18. ASA [Concomitant]
     Indication: PRODUCT USED FOR UNKNOWN INDICATION
     Dosage: 500 OR 250 MG, AS NEEDED
  19. B12 [Concomitant]
     Indication: PRODUCT USED FOR UNKNOWN INDICATION
     Dosage: 250
  20. VITAMIN C [Concomitant]
     Indication: PRODUCT USED FOR UNKNOWN INDICATION
  21. CALCIUM [Concomitant]
     Indication: PRODUCT USED FOR UNKNOWN INDICATION
  22. GAVISCON [Concomitant]
     Indication: ABDOMINAL DISCOMFORT
     Dosage: AS NEEDED
  23. GAS X [Concomitant]
     Indication: PRODUCT USED FOR UNKNOWN INDICATION
     Dosage: AS NEEDED
  24. VITAMIN D3 [Concomitant]
     Indication: PRODUCT USED FOR UNKNOWN INDICATION

REACTIONS (1)
  - Intestinal obstruction [Unknown]
